FAERS Safety Report 10965787 (Version 2)
Quarter: 2015Q2

REPORT INFORMATION
  Report Type: Spontaneous
  Country: GB (occurrence: GB)
  Receive Date: 20150330
  Receipt Date: 20150528
  Transmission Date: 20150821
  Serious: Yes (Disabling, Other)
  Sender: FDA-Public Use
  Company Number: GB-TEVA-549441ACC

PATIENT
  Age: 77 Year
  Sex: Male

DRUGS (16)
  1. PREDNISOLONE. [Interacting]
     Active Substance: PREDNISOLONE
     Indication: INFLAMMATION
     Route: 065
     Dates: start: 20150325
  2. CORDARONE [Interacting]
     Active Substance: AMIODARONE HYDROCHLORIDE
     Dosage: 600 MILLIGRAM DAILY;
     Route: 048
     Dates: start: 20150107, end: 20150304
  3. ADCAL-D3 [Concomitant]
     Active Substance: CALCIUM CARBONATE\CHOLECALCIFEROL
     Indication: RHEUMATOID ARTHRITIS
     Dosage: 2 DOSAGE FORMS DAILY; CHEWABLE TABLETS; DAILY DOSE: 2 DOSAGE FORMS
     Dates: start: 20090907
  4. RAMIPRIL. [Concomitant]
     Active Substance: RAMIPRIL
     Indication: CORONARY ARTERY BYPASS
     Dosage: 1 DOSAGE FORMS DAILY;
     Dates: start: 20090508
  5. PREDNISOLONE. [Concomitant]
     Active Substance: PREDNISOLONE
     Dosage: PREDNISOLONE 2.5 MG GASTRORESISTANT TABLET AS DIRECTED
     Route: 065
     Dates: start: 20140818
  6. GLYCERYL TRINITRATE [Concomitant]
     Active Substance: NITROGLYCERIN
     Indication: PRODUCT USED FOR UNKNOWN INDICATION
     Dosage: AEROSOL SUBLINGUAL SPRAY
     Route: 060
     Dates: start: 20081107
  7. CORDARONE [Interacting]
     Active Substance: AMIODARONE HYDROCHLORIDE
     Dosage: 400 MILLIGRAM DAILY;
     Route: 048
     Dates: start: 20150122, end: 20150128
  8. CORDARONE [Interacting]
     Active Substance: AMIODARONE HYDROCHLORIDE
     Dosage: 200 MILLIGRAM DAILY;
     Route: 048
     Dates: start: 20150128
  9. TAMSULOSIN [Concomitant]
     Active Substance: TAMSULOSIN
     Indication: BENIGN PROSTATIC HYPERPLASIA
     Dosage: 1 DOSAGE FORMS DAILY; MODIFIED RELEASE CAPSULES; DAILY DOSE: 1 DOSAGE FORMS
     Dates: start: 20110406
  10. LANSOPRAZOLE. [Concomitant]
     Active Substance: LANSOPRAZOLE
     Indication: PRODUCT USED FOR UNKNOWN INDICATION
     Dosage: 1 DOSAGE FORMS DAILY; 15MG GASTRO-RESISTANT CAPSULES; DAILYDOSE: 2 DOSAGE FORMS
     Dates: start: 20120903
  11. WARFARIN [Concomitant]
     Active Substance: WARFARIN
     Indication: PRODUCT USED FOR UNKNOWN INDICATION
     Dosage: TAKE ACCORDING TO INR RESULT AS DIRECTED 1MG TABLET
     Route: 065
     Dates: start: 20140603
  12. ALENDRONIC ACID [Concomitant]
     Active Substance: ALENDRONIC ACID
     Indication: RHEUMATOID ARTHRITIS
     Dosage: 10 MILLIGRAM DAILY; 70 MG TABLETS
     Dates: start: 20090907
  13. PREDNISOLONE. [Suspect]
     Active Substance: PREDNISOLONE
     Indication: RHEUMATOID ARTHRITIS
     Route: 065
  14. PREDNISOLONE. [Concomitant]
     Active Substance: PREDNISOLONE
     Indication: PRODUCT USED FOR UNKNOWN INDICATION
     Dosage: PREDNISOLONE 1MG TABLET
     Route: 065
     Dates: start: 20140818
  15. CORDARONE [Interacting]
     Active Substance: AMIODARONE HYDROCHLORIDE
     Indication: ATRIAL FLUTTER
     Dosage: 600 MILLIGRAM DAILY;
     Route: 048
     Dates: start: 20150116, end: 20150122
  16. ATORVASTATIN [Concomitant]
     Active Substance: ATORVASTATIN
     Indication: PRODUCT USED FOR UNKNOWN INDICATION
     Dosage: 1 DOSAGE FORMS DAILY; 10 MG TABLETS
     Route: 065
     Dates: start: 20120912

REACTIONS (7)
  - Pain in jaw [Recovering/Resolving]
  - Dysphagia [Not Recovered/Not Resolved]
  - Insomnia [Recovering/Resolving]
  - Drug interaction [Unknown]
  - Rheumatoid arthritis [Recovering/Resolving]
  - Photosensitivity reaction [Recovering/Resolving]
  - Arthralgia [Recovering/Resolving]

NARRATIVE: CASE EVENT DATE: 201501
